FAERS Safety Report 21895838 (Version 2)
Quarter: 2023Q1

REPORT INFORMATION
  Report Type: Report from Study
  Country: CO (occurrence: CO)
  Receive Date: 20230123
  Receipt Date: 20230331
  Transmission Date: 20230418
  Serious: Yes (Hospitalization, Other)
  Sender: FDA-Public Use
  Company Number: CO-AMGEN-COLSL2023011136

PATIENT
  Age: 50 Year
  Sex: Female

DRUGS (1)
  1. VECTIBIX [Suspect]
     Active Substance: PANITUMUMAB
     Indication: Colorectal cancer metastatic
     Dosage: 350 MILLIGRAM, Q2WK (BIWEEKLY)
     Route: 040
     Dates: start: 20220117

REACTIONS (2)
  - Urinary tract infection [Recovering/Resolving]
  - Neuropathy peripheral [Not Recovered/Not Resolved]
